FAERS Safety Report 9544240 (Version 1)
Quarter: 2013Q3

REPORT INFORMATION
  Report Type: Spontaneous
  Country: SE (occurrence: SE)
  Receive Date: 20130923
  Receipt Date: 20130923
  Transmission Date: 20140515
  Serious: Yes (Other)
  Sender: FDA-Public Use
  Company Number: SE-MERCK-1304SWE015428

PATIENT
  Age: 52 Year
  Sex: Female

DRUGS (5)
  1. NASONEX [Suspect]
     Indication: NASAL CONGESTION
     Route: 045
  2. NASONEX [Suspect]
     Indication: HOUSE DUST ALLERGY
  3. LORATADIN HEXAL [Concomitant]
  4. PULMICORT TURBUHALER [Concomitant]
  5. BRICANYL TURBUHALER [Concomitant]

REACTIONS (2)
  - Bronchospasm [Recovered/Resolved]
  - Dyspnoea [Recovered/Resolved]
